FAERS Safety Report 9473068 (Version 2)
Quarter: 2013Q3

REPORT INFORMATION
  Report Type: Spontaneous
  Country: US (occurrence: US)
  Receive Date: 20130823
  Receipt Date: 20130823
  Transmission Date: 20140515
  Serious: No
  Sender: FDA-Public Use
  Company Number: US-BRISTOL-MYERS SQUIBB COMPANY-17400680

PATIENT
  Age: 69 Year
  Sex: Male
  Weight: 80.72 kg

DRUGS (6)
  1. SPRYCEL [Suspect]
     Indication: CHRONIC MYELOID LEUKAEMIA
     Dosage: 1 DF:1 TAB OF SPRYCEL 100MG
     Route: 048
     Dates: start: 20130111
  2. CENTRUM SILVER [Concomitant]
  3. DIOVAN [Concomitant]
  4. JANUVIA [Concomitant]
  5. TYLENOL [Concomitant]
  6. XANAX [Concomitant]

REACTIONS (3)
  - Nausea [Recovering/Resolving]
  - Sinusitis [Recovering/Resolving]
  - Laboratory test abnormal [Unknown]
